FAERS Safety Report 6725797-7 (Version None)
Quarter: 2010Q2

REPORT INFORMATION
  Report Type: 
  Country: None (occurrence: None)
  Receive Date: 20100514
  Receipt Date: 20100430
  Transmission Date: 20101027
  Serious: Yes (Hospitalization)
  Sender: FDA-Public Use
  Company Number: PHHY2010CA29644

PATIENT
  Age: 71 Year
  Sex: Female

DRUGS (9)
  1. TERBINAFINE HCL [Suspect]
     Indication: ONYCHOMYCOSIS
     Dosage: 250 MG/DAY
  2. WARFARIN SODIUM [Interacting]
     Indication: DEEP VEIN THROMBOSIS
     Dosage: 5 MG/DAY
     Dates: start: 19950501
  3. WARFARIN SODIUM [Interacting]
     Dosage: 10 MG, BIW
  4. WARFARIN SODIUM [Interacting]
     Dosage: 5 MG/DAY
  5. CIMETIDINE [Concomitant]
     Dosage: 400 MG, BID
  6. HYDROCHLOROTHIAZIDE [Concomitant]
     Dosage: 25MG/DAY
     Dates: start: 19860101
  7. TRIAMTERENE [Concomitant]
     Dosage: 12.5 MG/DAY
     Dates: start: 19860101
  8. LEVOTHYROXINE SODIUM [Concomitant]
     Dosage: 0.25 MG/DAY
     Dates: start: 19860101
  9. IMIPRAMINE [Concomitant]
     Dosage: 25 MG/DAY
     Dates: start: 19860101

REACTIONS (10)
  - COAGULOPATHY [None]
  - DIVERTICULUM [None]
  - DRUG INTERACTION [None]
  - FAECES DISCOLOURED [None]
  - GASTROINTESTINAL HAEMORRHAGE [None]
  - HAEMATOCHEZIA [None]
  - HAEMATOCRIT DECREASED [None]
  - HAEMOGLOBIN DECREASED [None]
  - INTERNATIONAL NORMALISED RATIO INCREASED [None]
  - PROTHROMBIN TIME PROLONGED [None]
